FAERS Safety Report 5598579-X (Version None)
Quarter: 2007Q4

REPORT INFORMATION
  Report Type: 
  Country: None (occurrence: None)
  Receive Date: 20071226
  Receipt Date: 20071001
  Transmission Date: 20080405
  Serious: No
  Sender: FDA-Public Use
  Company Number: 2007PV033517

PATIENT
  Age: 15 Year
  Sex: Female

DRUGS (5)
  1. SYMLIN [Suspect]
     Indication: TYPE 1 DIABETES MELLITUS
     Dosage: 15, 60 MCG,QID, SC
     Route: 058
     Dates: start: 20070816, end: 20070101
  2. SYMLIN [Suspect]
     Indication: TYPE 1 DIABETES MELLITUS
     Dosage: 15, 60 MCG,QID, SC
     Route: 058
     Dates: start: 20071014
  3. INSULIN DETEMIR [Concomitant]
  4. METFORMIN [Concomitant]
  5. OSCAL [Concomitant]

REACTIONS (1)
  - INCORRECT DOSE ADMINISTERED [None]
